FAERS Safety Report 4641069-9 (Version None)
Quarter: 2005Q2

REPORT INFORMATION
  Report Type: 
  Country: None (occurrence: None)
  Receive Date: 20050419
  Receipt Date: 20050419
  Transmission Date: 20051028
  Serious: Yes (Other)
  Sender: FDA-Public Use
  Company Number: None

PATIENT
  Age: 59 Year
  Sex: Female
  Weight: 63.5036 kg

DRUGS (1)
  1. AVELOX [Suspect]
     Indication: INFECTION
     Dosage: 1   QDAY  ORAL
     Route: 048
     Dates: start: 20050131, end: 20050202

REACTIONS (4)
  - BLISTER [None]
  - ERYTHEMA [None]
  - PARAESTHESIA [None]
  - TENDERNESS [None]
